FAERS Safety Report 5800682-3 (Version None)
Quarter: 2008Q3

REPORT INFORMATION
  Report Type: 
  Country: None (occurrence: None)
  Receive Date: 20080703
  Receipt Date: 20080623
  Transmission Date: 20090109
  Serious: Yes (Other)
  Sender: FDA-Public Use
  Company Number: FR-BAXTER-2007BH009458

PATIENT
  Age: 49 Year
  Sex: Male

DRUGS (5)
  1. ADVATE [Suspect]
     Indication: HAEMATOMA
     Dosage: DOSE UNIT:UNKNOWN
     Route: 042
     Dates: start: 20051123
  2. ADVATE [Suspect]
     Route: 065
  3. ADVATE [Suspect]
     Route: 065
     Dates: start: 20080101, end: 20080101
  4. OPIAT [Concomitant]
  5. ANALGESICS [Concomitant]
     Indication: HAEMATOMA

REACTIONS (1)
  - BILIARY COLIC [None]
